FAERS Safety Report 7381306-3 (Version None)
Quarter: 2011Q1

REPORT INFORMATION
  Report Type: 
  Country: None (occurrence: None)
  Receive Date: 20110329
  Receipt Date: 20110321
  Transmission Date: 20110831
  Serious: Yes (Hospitalization, Other)
  Sender: FDA-Public Use
  Company Number: PHHY2010BR75288

PATIENT
  Sex: Female

DRUGS (1)
  1. FORASEQ [Suspect]

REACTIONS (5)
  - MALAISE [None]
  - DRUG ADMINISTRATION ERROR [None]
  - CARDIOMEGALY [None]
  - LUNG DISORDER [None]
  - DEPRESSED MOOD [None]
